FAERS Safety Report 16925745 (Version 1)
Quarter: 2019Q4

REPORT INFORMATION
  Report Type: Spontaneous
  Country: US (occurrence: US)
  Receive Date: 20191016
  Receipt Date: 20191016
  Transmission Date: 20200122
  Serious: Yes (Congenital Anomaly)
  Sender: FDA-Public Use
  Company Number: None

PATIENT
  Age: 77 Year
  Sex: Female

DRUGS (4)
  1. CANDESARTAN/HCT 32/25 [Concomitant]
  2. CLOPIDOGREL [Suspect]
     Active Substance: CLOPIDOGREL BISULFATE
     Route: 048
  3. EZETIMIBE 10MG [Concomitant]
     Active Substance: EZETIMIBE
  4. SPIRONOLACTONE 25 [Concomitant]
     Active Substance: SPIRONOLACTONE

REACTIONS (1)
  - Rash [None]

NARRATIVE: CASE EVENT DATE: 20190701
